FAERS Safety Report 8452149-4 (Version None)
Quarter: 2012Q2

REPORT INFORMATION
  Report Type: 
  Country: None (occurrence: None)
  Receive Date: 20120620
  Receipt Date: 20120410
  Transmission Date: 20120825
  Serious: Yes (Other)
  Sender: FDA-Public Use
  Company Number: NL-GLAXOSMITHKLINE-B0753338A

PATIENT
  Age: 8 Year
  Sex: Male

DRUGS (1)
  1. FLUTICASONE FUROATE [Suspect]
     Indication: ASTHMA
     Dosage: 500UG TWICE PER DAY
     Route: 065

REACTIONS (13)
  - NAUSEA [None]
  - SOMNOLENCE [None]
  - POISONING [None]
  - PYREXIA [None]
  - METABOLIC DISORDER [None]
  - ADRENOCORTICAL INSUFFICIENCY ACUTE [None]
  - ADRENAL INSUFFICIENCY [None]
  - BLOOD CORTISOL DECREASED [None]
  - HYPERINSULINISM [None]
  - ATROPHY [None]
  - DRUG ADMINISTRATION ERROR [None]
  - INFECTION [None]
  - HYPOGLYCAEMIA [None]
